FAERS Safety Report 10008932 (Version 3)
Quarter: 2014Q2

REPORT INFORMATION
  Report Type: Spontaneous
  Country: US (occurrence: US)
  Receive Date: 20140313
  Receipt Date: 20140408
  Transmission Date: 20141212
  Serious: Yes (Other)
  Sender: FDA-Public Use
  Company Number: PHEH2014US004427

PATIENT
  Sex: Female

DRUGS (2)
  1. TEGRETOL [Suspect]
     Dosage: 200 MG, QID
     Route: 048
  2. CLONAZEPAM [Concomitant]
     Dosage: UNK UKN, UNK

REACTIONS (9)
  - Convulsion [Unknown]
  - Nasal discomfort [Unknown]
  - Skin irritation [Unknown]
  - Malaise [Unknown]
  - Burning sensation [Unknown]
  - Palpitations [Unknown]
  - Abdominal discomfort [Unknown]
  - Dizziness [Unknown]
  - Dyspnoea [Unknown]
